FAERS Safety Report 4587089-4 (Version None)
Quarter: 2005Q1

REPORT INFORMATION
  Report Type: 
  Country: None (occurrence: None)
  Receive Date: 20050218
  Receipt Date: 20040513
  Transmission Date: 20050727
  Serious: Yes (Other)
  Sender: FDA-Public Use
  Company Number: PHNU2004DE01832

PATIENT
  Age: 51 Year
  Sex: Female

DRUGS (9)
  1. ESTRADIOL [Suspect]
     Dosage: 37.5MG
     Dates: start: 19960101, end: 20040301
  2. ESTRADIOL [Suspect]
     Dosage: 50MG
  3. ESTRADIOL [Suspect]
     Dosage: 75MG
  4. CORTISONE [Concomitant]
  5. AZATHIOPRINE [Concomitant]
  6. SALOFALK ^FALK^ [Concomitant]
  7. BETA BLOCKING AGENTS [Concomitant]
  8. ACE INHIBITOR NOS [Concomitant]
  9. MINERALS NOS [Concomitant]

REACTIONS (1)
  - BLADDER NEOPLASM SURGERY [None]
